FAERS Safety Report 4653009-7 (Version None)
Quarter: 2005Q2

REPORT INFORMATION
  Report Type: 
  Country: None (occurrence: None)
  Receive Date: 20050502
  Receipt Date: 20050502
  Transmission Date: 20051028
  Serious: No
  Sender: FDA-Public Use
  Company Number: None

PATIENT
  Sex: Male
  Weight: 111 kg

DRUGS (3)
  1. RITUXIMAB [Suspect]
     Dosage: 375MG/M2 IV OVER 30 MIN ON DAY 1, EVERY 28 DAYS
     Route: 042
     Dates: start: 20050411
  2. FLUDARABINE [Suspect]
     Dosage: 25MG/M2 IV OVER 30 MIN ON DAYS 1-5, EVERY 28 DAYS
     Route: 042
  3. FLAVOPIRIDOL [Suspect]
     Dosage: 20MG/M2 IV OVER 30 MIN FOLLOWED BY 20 MG/M2 IV OVER 4HR ON DAY 1, EVERY 28 DAYS FOR CYCLES 2-6
     Route: 042

REACTIONS (6)
  - ABDOMINAL DISCOMFORT [None]
  - CHILLS [None]
  - FEBRILE NEUTROPENIA [None]
  - MYALGIA [None]
  - NAUSEA [None]
  - RASH [None]
